FAERS Safety Report 9418133 (Version 1)
Quarter: 2013Q3

REPORT INFORMATION
  Report Type: Spontaneous
  Country: GB (occurrence: US)
  Receive Date: 20130724
  Receipt Date: 20130724
  Transmission Date: 20140515
  Serious: Yes (Other)
  Sender: FDA-Public Use
  Company Number: GB-PFIZER INC-2013210393

PATIENT
  Age: 72 Year
  Sex: Female

DRUGS (2)
  1. RAMIPRIL [Suspect]
     Dosage: 2.5 MG, 1X/DAY
     Route: 065
  2. ADVIL [Interacting]
     Indication: HEADACHE
     Dosage: 1 DF, 1X/DAY AS NEEDED
     Route: 065

REACTIONS (16)
  - Drug interaction [Unknown]
  - Pharyngeal oedema [Unknown]
  - Dyspnoea [Unknown]
  - Swelling face [Unknown]
  - Chillblains [Unknown]
  - Syncope [Recovered/Resolved]
  - Rash pruritic [Recovering/Resolving]
  - Throat irritation [Unknown]
  - Chest pain [Unknown]
  - Cough [Unknown]
  - Rash papular [Unknown]
  - Headache [Unknown]
  - Rash [Unknown]
  - Pruritus [Unknown]
  - Rash [Unknown]
  - Product label issue [Unknown]
